FAERS Safety Report 6929055-7 (Version None)
Quarter: 2010Q3

REPORT INFORMATION
  Report Type: 
  Country: None (occurrence: None)
  Receive Date: 20100817
  Receipt Date: 20100812
  Transmission Date: 20110219
  Serious: Yes (Other)
  Sender: FDA-Public Use
  Company Number: GR-ABBOTT-10P-066-0663787-00

PATIENT
  Sex: Female

DRUGS (1)
  1. DEPAKINE CHRONOSPHERE [Suspect]
     Indication: PRODUCT USED FOR UNKNOWN INDICATION

REACTIONS (4)
  - ABDOMINAL PAIN UPPER [None]
  - PRODUCT TASTE ABNORMAL [None]
  - SYNCOPE [None]
  - VISION BLURRED [None]
